FAERS Safety Report 16446870 (Version 2)
Quarter: 2019Q3

REPORT INFORMATION
  Report Type: Spontaneous
  Country: BR (occurrence: BR)
  Receive Date: 20190618
  Receipt Date: 20190916
  Transmission Date: 20191004
  Serious: Yes (Other)
  Sender: FDA-Public Use
  Company Number: BR-PFIZER INC-2019009924

PATIENT
  Age: 51 Year
  Sex: Male

DRUGS (5)
  1. LORAZEPAM. [Suspect]
     Active Substance: LORAZEPAM
     Dosage: 2 MG, UNK
  2. LORAX (LORAZEPAM) [Suspect]
     Active Substance: LORAZEPAM
     Indication: INSOMNIA
     Dosage: 2 MG, DAILY
  3. LORAZEPAM. [Suspect]
     Active Substance: LORAZEPAM
     Dosage: 2 MG, DAILY
  4. AVONEX [Concomitant]
     Active Substance: INTERFERON BETA-1A
     Indication: MULTIPLE SCLEROSIS
     Dosage: UNK
  5. LORAX (LORAZEPAM) [Suspect]
     Active Substance: LORAZEPAM
     Indication: ANXIETY DISORDER
     Dosage: 2 TABLETS, DAILY (PER NIGHT)
     Dates: start: 2004, end: 20190102

REACTIONS (22)
  - Dry mouth [Unknown]
  - Xerophthalmia [Unknown]
  - Withdrawal syndrome [Not Recovered/Not Resolved]
  - Anxiety [Not Recovered/Not Resolved]
  - Visual impairment [Unknown]
  - Off label use [Unknown]
  - Product use issue [Unknown]
  - Dysphemia [Not Recovered/Not Resolved]
  - Nasal dryness [Unknown]
  - Wrong technique in product usage process [Unknown]
  - Nervousness [Not Recovered/Not Resolved]
  - Disorientation [Unknown]
  - Drug ineffective [Unknown]
  - Feeling of despair [Not Recovered/Not Resolved]
  - Tongue dry [Unknown]
  - Loss of personal independence in daily activities [Unknown]
  - Feeling abnormal [Not Recovered/Not Resolved]
  - Dry skin [Unknown]
  - Dry throat [Unknown]
  - Drug dependence [Unknown]
  - Dry eye [Unknown]
  - Emotional distress [Not Recovered/Not Resolved]

NARRATIVE: CASE EVENT DATE: 20190102
